FAERS Safety Report 20842874 (Version 1)
Quarter: 2022Q2

REPORT INFORMATION
  Report Type: Spontaneous
  Country: US (occurrence: None)
  Receive Date: 20220517
  Receipt Date: 20220517
  Transmission Date: 20220721
  Serious: Yes (Hospitalization)
  Sender: FDA-Public Use
  Company Number: None

PATIENT
  Age: 49 Year
  Sex: Male
  Weight: 55 kg

DRUGS (1)
  1. FLUOROURACIL [Suspect]
     Active Substance: FLUOROURACIL
     Dates: end: 20220411

REACTIONS (8)
  - Intestinal perforation [None]
  - Dysuria [None]
  - Arthralgia [None]
  - Complication associated with device [None]
  - Gastrointestinal disorder [None]
  - Abscess [None]
  - Metastases to liver [None]
  - Pyelonephritis [None]

NARRATIVE: CASE EVENT DATE: 20220512
